FAERS Safety Report 12906476 (Version 1)
Quarter: 2016Q4

REPORT INFORMATION
  Report Type: Report from Study
  Country: SE (occurrence: SE)
  Receive Date: 20161103
  Receipt Date: 20161103
  Transmission Date: 20170207
  Serious: Yes (Hospitalization)
  Sender: FDA-Public Use
  Company Number: SE-JNJFOC-20160529183

PATIENT
  Age: 74 Year
  Sex: Male
  Weight: 67.6 kg

DRUGS (13)
  1. CANODERM [Concomitant]
     Dosage: 1 APPL. X2
     Route: 065
  2. PLACEBO [Suspect]
     Active Substance: UNSPECIFIED INGREDIENT
     Indication: TYPE 2 DIABETES MELLITUS
     Route: 048
     Dates: start: 20141114
  3. NEOTIGASON [Concomitant]
     Active Substance: ACITRETIN
     Dosage: 3X1
     Route: 065
  4. FOLIC ACID. [Concomitant]
     Active Substance: FOLIC ACID
     Dosage: X2
     Route: 065
  5. METOPROLOL. [Concomitant]
     Active Substance: METOPROLOL
     Dosage: X1
     Route: 065
  6. LOCOBASE [Concomitant]
     Dosage: 200 MG/G AND 45 MG/G IN ACCORDANCE WITH PREVIOUS PRESCRIPTION
     Route: 065
  7. BETNOVATE [Concomitant]
     Active Substance: BETAMETHASONE
     Dosage: IN ACCORDANCE WITH SEPARATE PRESCRIPTION
     Route: 065
  8. ENALAPRIL [Concomitant]
     Active Substance: ENALAPRIL
     Dosage: X1
     Route: 065
  9. TROMBYL [Concomitant]
     Active Substance: ASPIRIN
     Dosage: X1
     Route: 065
  10. LACTULOSE. [Concomitant]
     Active Substance: LACTULOSE
     Dosage: 15 ML IN THE MORNING AND EVENING
     Route: 065
  11. PLACEBO [Suspect]
     Active Substance: UNSPECIFIED INGREDIENT
     Route: 048
  12. METFORMIN [Concomitant]
     Active Substance: METFORMIN HYDROCHLORIDE
     Dosage: 1X2
     Route: 065
  13. EZETROL [Concomitant]
     Active Substance: EZETIMIBE
     Dosage: X1
     Route: 065

REACTIONS (2)
  - Urinary tract infection [Recovered/Resolved]
  - Vertigo [Unknown]

NARRATIVE: CASE EVENT DATE: 20160524
